FAERS Safety Report 17510825 (Version 2)
Quarter: 2020Q2

REPORT INFORMATION
  Report Type: Spontaneous
  Country: US (occurrence: US)
  Receive Date: 20200306
  Receipt Date: 20200604
  Transmission Date: 20200713
  Serious: No
  Sender: FDA-Public Use
  Company Number: US-HARMONY BIOSCIENCES-2019HMY00061

PATIENT
  Age: 57 Year
  Sex: Female
  Weight: 97.96 kg

DRUGS (2)
  1. WAKIX [Suspect]
     Active Substance: PITOLISANT HYDROCHLORIDE
     Indication: FATIGUE
     Dosage: 17.8 MG, 1X/DAY
     Dates: start: 201911
  2. WAKIX [Suspect]
     Active Substance: PITOLISANT HYDROCHLORIDE
     Indication: NARCOLEPSY
     Dosage: 35.6 MG, 1X/DAY

REACTIONS (4)
  - Toothache [Not Recovered/Not Resolved]
  - Device physical property issue [Not Recovered/Not Resolved]
  - Facial pain [Not Recovered/Not Resolved]
  - Therapeutic product effect incomplete [Not Recovered/Not Resolved]

NARRATIVE: CASE EVENT DATE: 201911
